FAERS Safety Report 6537925-7 (Version None)
Quarter: 2010Q1

REPORT INFORMATION
  Report Type: 
  Country: None (occurrence: None)
  Receive Date: 20100111
  Receipt Date: 20090409
  Transmission Date: 20100710
  Serious: Yes (Other)
  Sender: FDA-Public Use
  Company Number: 310002M09ITA

PATIENT
  Age: 42 Year
  Sex: Female

DRUGS (11)
  1. GONAL-F [Suspect]
     Indication: ANOVULATORY CYCLE
     Dosage: 75 IU, 10 IN 1 MONTHS; 150 IU, 10 IN 1 MONTHS
     Dates: start: 20010201, end: 20010201
  2. GONAL-F [Suspect]
     Indication: ANOVULATORY CYCLE
     Dosage: 75 IU, 10 IN 1 MONTHS; 150 IU, 10 IN 1 MONTHS
     Dates: start: 20010301, end: 20010501
  3. GONAL-F [Suspect]
     Indication: ANOVULATORY CYCLE
     Dosage: 75 IU, 10 IN 1 MONTHS; 150 IU, 10 IN 1 MONTHS
     Dates: start: 20010501, end: 20010501
  4. GONAL-F [Suspect]
     Indication: ANOVULATORY CYCLE
     Dosage: 75 IU, 10 IN 1 MONTHS; 150 IU, 10 IN 1 MONTHS
     Dates: start: 20010701, end: 20010701
  5. GONAL-F [Suspect]
     Indication: ANOVULATORY CYCLE
     Dosage: 75 IU, 10 IN 1 MONTHS; 150 IU, 10 IN 1 MONTHS
     Dates: start: 20020101, end: 20020101
  6. GONAL-F [Suspect]
     Indication: ANOVULATORY CYCLE
     Dosage: 75 IU, 10 IN 1 MONTHS; 150 IU, 10 IN 1 MONTHS
     Dates: start: 20020201, end: 20020201
  7. GONAL-F [Suspect]
     Indication: ANOVULATORY CYCLE
     Dosage: 75 IU, 10 IN 1 MONTHS; 150 IU, 10 IN 1 MONTHS
     Dates: start: 20020401, end: 20020401
  8. GONAL-F [Suspect]
     Indication: ANOVULATORY CYCLE
     Dosage: 75 IU, 10 IN 1 MONTHS; 150 IU, 10 IN 1 MONTHS
     Dates: start: 20020701, end: 20020701
  9. GONAL-F [Suspect]
     Indication: ANOVULATORY CYCLE
     Dosage: 75 IU, 10 IN 1 MONTHS; 150 IU, 10 IN 1 MONTHS
     Dates: start: 20021101, end: 20021101
  10. GONAL-F [Suspect]
     Indication: ANOVULATORY CYCLE
     Dosage: 75 IU, 10 IN 1 MONTHS; 150 IU, 10 IN 1 MONTHS
     Dates: start: 20021201, end: 20021201
  11. FOSTIMON (UROFOLLITROPIN) [Concomitant]

REACTIONS (2)
  - ENDOMETRIAL HYPERPLASIA [None]
  - ENDOMETRIAL METAPLASIA [None]
